FAERS Safety Report 13935411 (Version 1)
Quarter: 2017Q3

REPORT INFORMATION
  Report Type: Report from Study
  Country: BR (occurrence: BR)
  Receive Date: 20170905
  Receipt Date: 20170905
  Transmission Date: 20171127
  Serious: Yes (Life-Threatening, Other)
  Sender: FDA-Public Use
  Company Number: PHHY2017BR126121

PATIENT
  Sex: Male

DRUGS (3)
  1. SPRYCEL [Concomitant]
     Active Substance: DASATINIB
     Indication: PRODUCT USED FOR UNKNOWN INDICATION
     Dosage: UNK
     Route: 065
  2. GLIVEC [Suspect]
     Active Substance: IMATINIB MESYLATE
     Dosage: 600 MG, QD
     Route: 065
  3. GLIVEC [Suspect]
     Active Substance: IMATINIB MESYLATE
     Indication: CHRONIC MYELOID LEUKAEMIA
     Dosage: 400 MG
     Route: 065

REACTIONS (11)
  - Feeling abnormal [Unknown]
  - Nail injury [Unknown]
  - Therapy non-responder [Unknown]
  - Vein disorder [Unknown]
  - Vomiting [Unknown]
  - Platelet count decreased [Unknown]
  - Full blood count decreased [Unknown]
  - Malaise [Unknown]
  - Nausea [Unknown]
  - Eye haemorrhage [Unknown]
  - Diarrhoea [Unknown]
